FAERS Safety Report 9606898 (Version 1)
Quarter: 2013Q4

REPORT INFORMATION
  Report Type: Spontaneous
  Country: US (occurrence: US)
  Receive Date: 20131008
  Receipt Date: 20131008
  Transmission Date: 20140711
  Serious: Yes (Other)
  Sender: FDA-Public Use
  Company Number: US-AMGEN-USASP2013068380

PATIENT
  Age: 78 Year
  Sex: Female

DRUGS (8)
  1. PROLIA [Suspect]
     Indication: OSTEOPOROSIS POSTMENOPAUSAL
     Dosage: UNK
     Route: 065
     Dates: start: 201204
  2. ATORVASTATIN [Concomitant]
  3. BABY ASPIRIN [Concomitant]
  4. CALCIUM [Concomitant]
  5. RANITIDINE [Concomitant]
  6. MULTIVITAMIN                       /00097801/ [Concomitant]
  7. OCUVITE                            /01053801/ [Concomitant]
  8. TYLENOL                            /00020001/ [Concomitant]

REACTIONS (5)
  - Back pain [Unknown]
  - Arthralgia [Unknown]
  - Gait disturbance [Unknown]
  - Constipation [Unknown]
  - Muscle spasms [Unknown]
